FAERS Safety Report 6859889-9 (Version None)
Quarter: 2010Q3

REPORT INFORMATION
  Report Type: 
  Country: None (occurrence: None)
  Receive Date: 20100720
  Receipt Date: 20100602
  Transmission Date: 20110219
  Serious: No
  Sender: FDA-Public Use
  Company Number: US-BAYER-201011815NA

PATIENT
  Age: 10 Month
  Sex: Male

DRUGS (1)
  1. KOGENATE FS [Suspect]
     Indication: FACTOR VIII DEFICIENCY

REACTIONS (3)
  - ARTHRALGIA [None]
  - JOINT INJURY [None]
  - JOINT SWELLING [None]
